FAERS Safety Report 6060211-9 (Version None)
Quarter: 2009Q1

REPORT INFORMATION
  Report Type: 
  Country: None (occurrence: None)
  Receive Date: 20090129
  Receipt Date: 20090127
  Transmission Date: 20090719
  Serious: Yes (Other)
  Sender: FDA-Public Use
  Company Number: SP02232

PATIENT
  Age: 56 Year
  Sex: Female

DRUGS (1)
  1. MOVIPREP [Suspect]
     Indication: COLONOSCOPY
     Dosage: (121 GM,ONCE) ,ORAL
     Route: 048
     Dates: start: 20081106, end: 20081106

REACTIONS (4)
  - ABDOMINAL PAIN [None]
  - COLITIS [None]
  - HAEMATOCHEZIA [None]
  - PURPURA [None]
